FAERS Safety Report 4967881-4 (Version None)
Quarter: 2006Q2

REPORT INFORMATION
  Report Type: 
  Country: None (occurrence: None)
  Receive Date: 20060410
  Receipt Date: 20051004
  Transmission Date: 20061013
  Serious: Yes (Hospitalization)
  Sender: FDA-Public Use
  Company Number: US-MERCK-0510USA03538

PATIENT
  Age: 53 Year
  Sex: Male
  Weight: 115 kg

DRUGS (16)
  1. VIOXX [Suspect]
     Indication: OSTEOARTHRITIS
     Route: 048
     Dates: start: 20040218, end: 20040101
  2. AMARYL [Concomitant]
     Route: 065
  3. THEOPHYLLINE [Concomitant]
     Route: 065
  4. ACCUPRIL [Concomitant]
     Route: 065
  5. MOBIC [Concomitant]
     Route: 065
  6. BUSPAR [Concomitant]
     Route: 065
  7. METFORMIN [Concomitant]
     Route: 065
  8. SINGULAIR [Concomitant]
     Route: 065
  9. OMEPRAZOLE [Concomitant]
     Route: 065
  10. WELLBUTRIN SR [Concomitant]
     Route: 065
  11. ZOCOR [Concomitant]
     Route: 065
  12. LANTUS [Concomitant]
     Route: 065
  13. HUMULIN 70/30 [Concomitant]
     Route: 065
  14. ALBUTEROL [Concomitant]
     Route: 065
  15. COMBIVENT [Concomitant]
     Route: 065
  16. ADVAIR DISKUS 100/50 [Concomitant]
     Route: 065

REACTIONS (9)
  - ARTHRALGIA [None]
  - CHEST PAIN [None]
  - CHRONIC OBSTRUCTIVE PULMONARY DISEASE [None]
  - CORONARY ARTERY STENOSIS [None]
  - DIABETES MELLITUS [None]
  - DIABETES MELLITUS INADEQUATE CONTROL [None]
  - HERPES ZOSTER [None]
  - MYOCARDIAL ISCHAEMIA [None]
  - SCAR [None]
